FAERS Safety Report 7277644-5 (Version None)
Quarter: 2010Q4

REPORT INFORMATION
  Report Type: 
  Country: None (occurrence: None)
  Receive Date: 20101215
  Receipt Date: 20100216
  Transmission Date: 20110411
  Serious: Yes (Other)
  Sender: FDA-Public Use
  Company Number: ENTC2009-0451

PATIENT
  Sex: Female

DRUGS (1)
  1. STALEVO 100 [Suspect]

REACTIONS (1)
  - HEART RATE IRREGULAR [None]
